FAERS Safety Report 8600424-2 (Version None)
Quarter: 2012Q3

REPORT INFORMATION
  Report Type: 
  Country: None (occurrence: None)
  Receive Date: 20120808
  Receipt Date: 20120808
  Transmission Date: 20120928
  Serious: Yes (Life-Threatening)
  Sender: FDA-Public Use
  Company Number: None

PATIENT
  Age: 76 Year
  Sex: Male
  Weight: 101.6057 kg

DRUGS (1)
  1. PRADAXA [Suspect]
     Indication: CORONARY ARTERIAL STENT INSERTION
     Dosage: 75 MG 2X DAILY
     Dates: start: 20110910, end: 20110912

REACTIONS (1)
  - PENILE HAEMORRHAGE [None]
